FAERS Safety Report 6769397-1 (Version None)
Quarter: 2010Q2

REPORT INFORMATION
  Report Type: 
  Country: None (occurrence: None)
  Receive Date: 20100615
  Receipt Date: 20100608
  Transmission Date: 20101027
  Serious: Yes (Life-Threatening, Other)
  Sender: FDA-Public Use
  Company Number: PHHY2010CA32922

PATIENT
  Sex: Female

DRUGS (14)
  1. ALISKIREN ALI+ [Suspect]
     Indication: HYPERTENSION
     Dosage: 150 MG DAILY
     Route: 048
     Dates: start: 20100515, end: 20100516
  2. TRIAMTERENE [Concomitant]
     Dosage: 50 MG
  3. HYDROCHLOROTHIAZIDE [Concomitant]
     Dosage: 25 MG
     Dates: start: 20060101
  4. LIPITOR [Concomitant]
     Dosage: 4 G
     Dates: start: 20080101
  5. EFFEXOR [Concomitant]
     Dosage: 150 G XR
  6. PERINDOPRIL [Concomitant]
     Dosage: 8 MG
     Dates: start: 20080101
  7. SYNTHROID [Concomitant]
  8. ASAPHEN [Concomitant]
     Dosage: 80 MG
     Dates: start: 20080101
  9. CODEINE [Concomitant]
     Dosage: UNK
     Dates: start: 20090101
  10. VITAMIN D [Concomitant]
     Dosage: 10000 IU
  11. VITAMIN D [Concomitant]
     Dosage: UNK
     Dates: start: 20100516
  12. ACE INHIBITOR NOS [Concomitant]
  13. ASPIRIN [Concomitant]
  14. ANTIDEPRESSANTS [Concomitant]

REACTIONS (22)
  - ANAPHYLACTIC REACTION [None]
  - BRONCHOSPASM [None]
  - DYSARTHRIA [None]
  - DYSPHAGIA [None]
  - DYSPNOEA [None]
  - ERYTHEMA [None]
  - EYE OEDEMA [None]
  - LARYNGOSPASM [None]
  - LIP OEDEMA [None]
  - LOCALISED OEDEMA [None]
  - NASAL OEDEMA [None]
  - OEDEMA [None]
  - OEDEMA MOUTH [None]
  - PRURITUS [None]
  - RASH [None]
  - RESPIRATORY DISTRESS [None]
  - STRIDOR [None]
  - SWELLING [None]
  - SWELLING FACE [None]
  - TONGUE OEDEMA [None]
  - URTICARIA [None]
  - WHEEZING [None]
